FAERS Safety Report 10217611 (Version 1)
Quarter: 2014Q2

REPORT INFORMATION
  Report Type: Report from Study
  Country: CN (occurrence: CN)
  Receive Date: 20140604
  Receipt Date: 20140604
  Transmission Date: 20141212
  Serious: Yes (Other)
  Sender: FDA-Public Use
  Company Number: CN-BAXTER-2014BAX028921

PATIENT
  Sex: 0

DRUGS (10)
  1. ENDOXAN 1G [Suspect]
     Indication: DIFFUSE LARGE B-CELL LYMPHOMA
     Dosage: ON DAY 1; FOR 8 CYCLES
     Route: 042
  2. BEVACIZUMAB [Suspect]
     Indication: DIFFUSE LARGE B-CELL LYMPHOMA
     Dosage: ON DAY 1; FOR 8 CYCLES
     Route: 042
  3. BEVACIZUMAB [Suspect]
     Route: 042
  4. RITUXIMAB [Suspect]
     Indication: DIFFUSE LARGE B-CELL LYMPHOMA
     Dosage: ON DAY 1; FOR 8 CYCLES
     Route: 042
  5. VINCRISTINE [Suspect]
     Indication: DIFFUSE LARGE B-CELL LYMPHOMA
     Dosage: ON DAY 1; FOR 8 CYCLES
     Route: 042
  6. DOXORUBICIN [Suspect]
     Indication: DIFFUSE LARGE B-CELL LYMPHOMA
     Dosage: ON DAY 1; FOR 8 CYCLES
     Route: 042
  7. PREDNISONE [Suspect]
     Indication: DIFFUSE LARGE B-CELL LYMPHOMA
     Dosage: ON DAYS 1-5; FOR 8 CYCLES
     Route: 048
  8. DEXAMETHASONE [Suspect]
     Indication: PREMEDICATION
     Route: 042
  9. PROMETHAZINE [Suspect]
     Indication: PREMEDICATION
     Route: 030
  10. GRANULOCYTE COLONY-STIMULATING FACTOR NOS [Suspect]
     Indication: PROPHYLAXIS
     Route: 065

REACTIONS (2)
  - Proteinuria [Unknown]
  - Cardiac failure congestive [Unknown]
